FAERS Safety Report 16108020 (Version 1)
Quarter: 2019Q1

REPORT INFORMATION
  Report Type: Spontaneous
  Country: CA (occurrence: CA)
  Receive Date: 20190322
  Receipt Date: 20190322
  Transmission Date: 20190418
  Serious: Yes (Other)
  Sender: FDA-Public Use
  Company Number: PHHY2019CA060196

PATIENT
  Age: 26 Year
  Sex: Female

DRUGS (14)
  1. TOPOTECAN HYDROCHLORIDE. [Suspect]
     Active Substance: TOPOTECAN HYDROCHLORIDE
     Indication: PHAEOCHROMOCYTOMA
     Dosage: UNK
     Route: 065
  2. CYCLOPHOSPHAMIDE. [Suspect]
     Active Substance: CYCLOPHOSPHAMIDE
     Indication: PARAGANGLION NEOPLASM MALIGNANT
  3. SUNITINIB MALATE. [Suspect]
     Active Substance: SUNITINIB MALATE
     Indication: PHAEOCHROMOCYTOMA
     Dosage: UNK
     Route: 065
  4. TEMOZOLOMIDE. [Suspect]
     Active Substance: TEMOZOLOMIDE
     Indication: PHAEOCHROMOCYTOMA
     Dosage: UNK
     Route: 065
  5. SUNITINIB MALATE. [Suspect]
     Active Substance: SUNITINIB MALATE
     Indication: PARAGANGLION NEOPLASM MALIGNANT
  6. AFINITOR [Suspect]
     Active Substance: EVEROLIMUS
     Indication: PHAEOCHROMOCYTOMA
     Dosage: UNK
     Route: 065
  7. VANDETANIB. [Suspect]
     Active Substance: VANDETANIB
     Indication: PARAGANGLION NEOPLASM MALIGNANT
  8. TOPOTECAN HYDROCHLORIDE. [Suspect]
     Active Substance: TOPOTECAN HYDROCHLORIDE
     Indication: PARAGANGLION NEOPLASM MALIGNANT
  9. MESNA. [Suspect]
     Active Substance: MESNA
     Indication: PARAGANGLION NEOPLASM MALIGNANT
  10. AFINITOR [Suspect]
     Active Substance: EVEROLIMUS
     Indication: PARAGANGLION NEOPLASM MALIGNANT
     Dosage: UNK
     Route: 065
  11. TEMOZOLOMIDE. [Suspect]
     Active Substance: TEMOZOLOMIDE
     Indication: PARAGANGLION NEOPLASM MALIGNANT
  12. MESNA. [Suspect]
     Active Substance: MESNA
     Indication: PHAEOCHROMOCYTOMA
     Dosage: UNK
     Route: 065
  13. VANDETANIB. [Suspect]
     Active Substance: VANDETANIB
     Indication: PHAEOCHROMOCYTOMA
     Dosage: UNK
     Route: 065
  14. CYCLOPHOSPHAMIDE. [Suspect]
     Active Substance: CYCLOPHOSPHAMIDE
     Indication: PHAEOCHROMOCYTOMA
     Dosage: UNK
     Route: 065

REACTIONS (6)
  - Metastases to liver [Recovering/Resolving]
  - Headache [Recovering/Resolving]
  - Metastases to bone [Recovering/Resolving]
  - Metastases to central nervous system [Recovering/Resolving]
  - Insomnia [Recovering/Resolving]
  - Pancytopenia [Recovering/Resolving]
